FAERS Safety Report 7966094-1 (Version None)
Quarter: 2011Q4

REPORT INFORMATION
  Report Type: 
  Country: None (occurrence: None)
  Receive Date: 20111208
  Receipt Date: 20111203
  Transmission Date: 20120403
  Serious: No
  Sender: FDA-Public Use
  Company Number: US-PFIZER INC-2011295414

PATIENT
  Sex: Female
  Weight: 56.689 kg

DRUGS (4)
  1. ALBUTEROL SULFATE [Concomitant]
     Indication: ASTHMA
     Dosage: 2 DF, DAILY
     Route: 055
  2. SPIRONOLACTONE [Suspect]
     Indication: DIURETIC THERAPY
     Dosage: 50 MG, DAILY
     Route: 048
     Dates: start: 20110801
  3. LASIX [Concomitant]
     Indication: DIURETIC THERAPY
     Dosage: UNK
  4. LIPITOR [Concomitant]
     Indication: BLOOD CHOLESTEROL INCREASED
     Dosage: 10 MG, DAILY

REACTIONS (1)
  - DYSGEUSIA [None]
